FAERS Safety Report 5859886-6 (Version None)
Quarter: 2008Q3

REPORT INFORMATION
  Report Type: 
  Country: None (occurrence: None)
  Receive Date: 20080818
  Receipt Date: 20080507
  Transmission Date: 20090109
  Serious: No
  Sender: FDA-Public Use
  Company Number: TPA2008A00663

PATIENT
  Age: 47 Year
  Sex: Male

DRUGS (1)
  1. ROZEREM [Suspect]
     Indication: DRUG USE FOR UNKNOWN INDICATION
     Dosage: 8 MG, HS, PER ORAL
     Route: 048

REACTIONS (3)
  - DIZZINESS [None]
  - HYPERSOMNIA [None]
  - SOMNOLENCE [None]
